FAERS Safety Report 22044556 (Version 1)
Quarter: 2023Q1

REPORT INFORMATION
  Report Type: Spontaneous
  Country: US (occurrence: None)
  Receive Date: 20230227
  Receipt Date: 20230227
  Transmission Date: 20230418
  Serious: No
  Sender: FDA-Public Use
  Company Number: None

PATIENT
  Age: 5 Year
  Sex: Female
  Weight: 26.1 kg

DRUGS (1)
  1. AMOXICILLIN [Suspect]
     Active Substance: AMOXICILLIN
     Indication: Pharyngitis streptococcal
     Dosage: FREQUENCY : TWICE A DAY;?
     Route: 048
     Dates: start: 20230213, end: 20230223

REACTIONS (1)
  - Rash papular [None]

NARRATIVE: CASE EVENT DATE: 20230223
